FAERS Safety Report 5056449-X (Version None)
Quarter: 2006Q3

REPORT INFORMATION
  Report Type: 
  Country: None (occurrence: None)
  Receive Date: 20060720
  Receipt Date: 20051216
  Transmission Date: 20061208
  Serious: Yes (Death, Hospitalization)
  Sender: FDA-Public Use
  Company Number: IT-SANOFI-SYNTHELABO-F01200502807

PATIENT
  Sex: Male
  Weight: 54 kg

DRUGS (7)
  1. NEXIUM [Concomitant]
     Dates: start: 20051117
  2. BUSCOPAN [Concomitant]
     Dates: start: 20051104
  3. DEXAMETHASONE TAB [Concomitant]
     Dates: start: 20051013, end: 20051116
  4. DOBETIN [Concomitant]
     Dates: start: 20051004
  5. FOLINIC ACID [Concomitant]
     Dates: start: 20051004, end: 20051128
  6. PEMETREXED [Suspect]
     Indication: GASTRIC CANCER
     Route: 042
     Dates: start: 20051014
  7. OXALIPLATIN [Suspect]
     Indication: GASTRIC CANCER
     Route: 042
     Dates: start: 20051014

REACTIONS (5)
  - ASTHENIA [None]
  - DEHYDRATION [None]
  - DIARRHOEA [None]
  - DISEASE PROGRESSION [None]
  - STOMATITIS [None]
